FAERS Safety Report 4363847-6 (Version None)
Quarter: 2004Q2

REPORT INFORMATION
  Report Type: 
  Country: None (occurrence: None)
  Receive Date: 20040520
  Receipt Date: 20040520
  Transmission Date: 20050107
  Serious: Yes (Other)
  Sender: FDA-Public Use
  Company Number: None

PATIENT

DRUGS (1)
  1. BUPIVACAINE HCL [Suspect]
     Indication: LOCAL ANAESTHESIA
     Dates: start: 20040515, end: 20040515

REACTIONS (2)
  - PAIN [None]
  - PHARMACEUTICAL PRODUCT COMPLAINT [None]
